FAERS Safety Report 5418607-1 (Version None)
Quarter: 2007Q3

REPORT INFORMATION
  Report Type: 
  Country: None (occurrence: None)
  Receive Date: 20070817
  Receipt Date: 20070809
  Transmission Date: 20080115
  Serious: Yes (Other)
  Sender: FDA-Public Use
  Company Number: DE-ABBOTT-07P-062-0375156-00

PATIENT
  Sex: Male

DRUGS (2)
  1. ERGENYL CHRONOSPHERE [Suspect]
     Indication: EPILEPSY
     Route: 048
     Dates: start: 20060101
  2. ERGENYL CHRONOSPHERE [Suspect]
     Route: 048

REACTIONS (3)
  - APLASIA PURE RED CELL [None]
  - APLASTIC ANAEMIA [None]
  - ARTHRITIS [None]
